FAERS Safety Report 24113223 (Version 1)
Quarter: 2024Q3

REPORT INFORMATION
  Report Type: Spontaneous
  Country: US (occurrence: US)
  Receive Date: 20240719
  Receipt Date: 20240719
  Transmission Date: 20241017
  Serious: Yes (Other)
  Sender: ELI LILLY AND CO
  Company Number: US-ELI_LILLY_AND_COMPANY-US202407006448

PATIENT
  Age: 52 Year
  Sex: Male

DRUGS (4)
  1. TRULICITY [Suspect]
     Active Substance: DULAGLUTIDE
     Indication: Product used for unknown indication
     Dosage: UNK, UNKNOWN
     Route: 065
  2. TRULICITY [Suspect]
     Active Substance: DULAGLUTIDE
     Dosage: UNK, UNKNOWN
     Route: 065
  3. OGSIVEO [Suspect]
     Active Substance: NIROGACESTAT\NIROGACESTAT HYDROBROMIDE
     Indication: Desmoid tumour
     Dosage: 150 MG, BID
     Route: 048
     Dates: start: 20231220, end: 20240307
  4. OGSIVEO [Suspect]
     Active Substance: NIROGACESTAT\NIROGACESTAT HYDROBROMIDE
     Dosage: 100 MG, BID
     Route: 048
     Dates: start: 20240309

REACTIONS (18)
  - Neoplasm progression [Unknown]
  - Pharyngitis [Recovered/Resolved]
  - Musculoskeletal stiffness [Unknown]
  - Ejaculation failure [Recovered/Resolved]
  - Tonsillitis [Recovered/Resolved]
  - Immunodeficiency [Not Recovered/Not Resolved]
  - Glycosylated haemoglobin increased [Recovering/Resolving]
  - Kidney infection [Recovered/Resolved]
  - Conjunctivitis [Recovered/Resolved]
  - Candida infection [Recovered/Resolved]
  - Gastrointestinal sounds abnormal [Not Recovered/Not Resolved]
  - Colitis [Recovered/Resolved]
  - Cystitis [Recovered/Resolved]
  - Nephrolithiasis [Recovered/Resolved]
  - Meniscus injury [Recovered/Resolved]
  - Joint injury [Recovered/Resolved]
  - Diarrhoea [Recovered/Resolved]
  - Constipation [Unknown]

NARRATIVE: CASE EVENT DATE: 20231222
